FAERS Safety Report 8988578 (Version 1)
Quarter: 2012Q4

REPORT INFORMATION
  Report Type: Report from Study
  Country: DE (occurrence: DE)
  Receive Date: 20121228
  Receipt Date: 20121228
  Transmission Date: 20130627
  Serious: Yes (Hospitalization)
  Sender: FDA-Public Use
  Company Number: DE-TEVA-2009007462

PATIENT
  Age: 74 Year
  Sex: Female
  Weight: 60 kg

DRUGS (16)
  1. BENDAMUSTINE HYDROCHLORIDE [Suspect]
     Indication: NON-HODGKIN^S LYMPHOMA
     Dosage: 280 Milligram Daily;
     Route: 042
     Dates: start: 20090513, end: 20090514
  2. ALLOPURINOL [Suspect]
     Dates: start: 20090512, end: 20090522
  3. RITUXIMAB [Suspect]
     Indication: NON-HODGKIN^S LYMPHOMA
     Dates: start: 20090512, end: 20090512
  4. PARACETAMOL [Concomitant]
     Dates: start: 20090512, end: 20090512
  5. RANITIC [Concomitant]
     Dates: start: 20090512, end: 20090512
  6. DEXAMETHASONE [Concomitant]
     Dates: start: 20090512, end: 20090512
  7. TAVEGIL [Concomitant]
     Dates: start: 20090512, end: 20090512
  8. HEPARIN [Concomitant]
  9. FURESIS [Concomitant]
     Dosage: 20 Milligram Daily;
  10. APROVEL 150 MG [Concomitant]
     Dosage: 75 Milligram Daily;
  11. QUERTO [Concomitant]
     Dosage: 1 Dosage forms Daily;
  12. BROMHEXINE [Concomitant]
     Dosage: 60 Gtt Daily;
  13. TRYASOL [Concomitant]
  14. MADOPAR 125 MG [Concomitant]
     Dosage: 3 Dosage forms Daily;
  15. REQUIP [Concomitant]
     Dosage: 12 Milligram Daily;
  16. MCP [Concomitant]

REACTIONS (4)
  - Pneumonia [Recovered/Resolved]
  - Oral herpes [Recovered/Resolved]
  - Generalised erythema [Recovered/Resolved]
  - Deep vein thrombosis [Recovered/Resolved]
